FAERS Safety Report 7766815-7 (Version None)
Quarter: 2011Q3

REPORT INFORMATION
  Report Type: 
  Country: None (occurrence: None)
  Receive Date: 20110922
  Receipt Date: 20101203
  Transmission Date: 20111222
  Serious: No
  Sender: FDA-Public Use
  Company Number: US-ASTRAZENECA-2010SE24026

PATIENT
  Age: 48 Year
  Sex: Female

DRUGS (6)
  1. SEROQUEL [Suspect]
     Indication: SLEEP DISORDER
     Route: 048
     Dates: start: 19960101, end: 20100901
  2. SEROQUEL [Suspect]
     Route: 048
     Dates: start: 20100901
  3. SEROQUEL [Suspect]
     Indication: ANTIDEPRESSANT THERAPY
     Route: 048
     Dates: start: 19960101, end: 20100901
  4. SEROQUEL [Suspect]
     Route: 048
     Dates: start: 20100901, end: 20100901
  5. SEROQUEL [Suspect]
     Route: 048
     Dates: start: 20100901
  6. SEROQUEL [Suspect]
     Route: 048
     Dates: start: 20100901, end: 20100901

REACTIONS (3)
  - DRUG DOSE OMISSION [None]
  - WITHDRAWAL SYNDROME [None]
  - SPEECH DISORDER [None]
